FAERS Safety Report 5852355-9 (Version None)
Quarter: 2008Q3

REPORT INFORMATION
  Report Type: 
  Country: None (occurrence: None)
  Receive Date: 20080820
  Receipt Date: 20080820
  Transmission Date: 20090109
  Serious: Yes (Life-Threatening, Hospitalization, Other)
  Sender: FDA-Public Use
  Company Number: None

PATIENT
  Age: 49 Year
  Sex: Female
  Weight: 83.4619 kg

DRUGS (1)
  1. CEPHELAXIN [Suspect]
     Indication: CYSTITIS
     Dates: start: 20080515, end: 20080521

REACTIONS (1)
  - LUNG DISORDER [None]
